FAERS Safety Report 4717868-1 (Version None)
Quarter: 2005Q3

REPORT INFORMATION
  Report Type: 
  Country: None (occurrence: None)
  Receive Date: 20050718
  Receipt Date: 20050718
  Transmission Date: 20060218
  Serious: Yes (Other)
  Sender: FDA-Public Use
  Company Number: None

PATIENT
  Age: 39 Year
  Sex: Male
  Weight: 104.3273 kg

DRUGS (1)
  1. ZOLOFT [Suspect]
     Indication: DEPRESSION
     Dosage: 1   DAY
     Dates: start: 20030101, end: 20050714

REACTIONS (4)
  - DIZZINESS [None]
  - LETHARGY [None]
  - NECK PAIN [None]
  - SENSORY DISTURBANCE [None]
